FAERS Safety Report 9143579 (Version 1)
Quarter: 2013Q1

REPORT INFORMATION
  Report Type: Spontaneous
  Country: RO (occurrence: RO)
  Receive Date: 20130306
  Receipt Date: 20130306
  Transmission Date: 20140127
  Serious: Yes (Other)
  Sender: FDA-Public Use
  Company Number: RO-ASTRAZENECA-2013SE12731

PATIENT
  Age: 61 Year
  Sex: Female
  Weight: 66 kg

DRUGS (2)
  1. VIMOVO [Suspect]
     Indication: OSTEOARTHRITIS
     Route: 048
     Dates: start: 20130201, end: 20130203
  2. DAIVOBET [Concomitant]
     Indication: PSORIASIS
     Dosage: 2 APPLICATIONS/DAY
     Route: 003

REACTIONS (5)
  - Hypoaesthesia oral [Recovered/Resolved]
  - Face oedema [Recovered/Resolved]
  - Nausea [Recovered/Resolved]
  - Hyperhidrosis [Recovered/Resolved]
  - Vertigo [Recovered/Resolved]
